FAERS Safety Report 4632010-3 (Version None)
Quarter: 2005Q2

REPORT INFORMATION
  Report Type: 
  Country: None (occurrence: None)
  Receive Date: 20050325
  Receipt Date: 20041129
  Transmission Date: 20051028
  Serious: No
  Sender: FDA-Public Use
  Company Number: USA041183425

PATIENT
  Age: 76 Year
  Sex: Female
  Weight: 55 kg

DRUGS (1)
  1. FORTEO [Suspect]
     Indication: SPINAL DEFORMITY
     Dosage: 20 UG/1 DAY
     Dates: start: 20040701

REACTIONS (3)
  - DIZZINESS [None]
  - INADEQUATE DIET [None]
  - SPINAL DEFORMITY [None]
